FAERS Safety Report 11857047 (Version 19)
Quarter: 2017Q3

REPORT INFORMATION
  Report Type: Report from Study
  Country: US (occurrence: US)
  Receive Date: 20151221
  Receipt Date: 20170818
  Transmission Date: 20171127
  Serious: Yes (Hospitalization, Other)
  Sender: FDA-Public Use
  Company Number: US-JNJFOC-20151116008

PATIENT
  Age: 74 Year
  Sex: Male

DRUGS (14)
  1. CITALOPRAM HYDROBROMIDE. [Concomitant]
     Active Substance: CITALOPRAM HYDROBROMIDE
     Indication: ANXIETY
     Route: 048
  2. ASPIRIN. [Concomitant]
     Active Substance: ASPIRIN
  3. IMBRUVICA [Suspect]
     Active Substance: IBRUTINIB
     Indication: CHRONIC LYMPHOCYTIC LEUKAEMIA
     Route: 048
     Dates: start: 20151106
  4. IMBRUVICA [Suspect]
     Active Substance: IBRUTINIB
     Indication: CHRONIC LYMPHOCYTIC LEUKAEMIA
     Route: 048
     Dates: start: 20161122
  5. CITALOPRAM HYDROBROMIDE. [Concomitant]
     Active Substance: CITALOPRAM HYDROBROMIDE
     Indication: DEPRESSION
     Route: 048
  6. LOVASTATIN. [Concomitant]
     Active Substance: LOVASTATIN
     Indication: BLOOD CHOLESTEROL ABNORMAL
     Dosage: AT BEDTIME
     Route: 048
  7. NOVOLOG [Concomitant]
     Active Substance: INSULIN ASPART
     Dosage: SLIDING SCALE
  8. LOVASTATIN. [Concomitant]
     Active Substance: LOVASTATIN
     Indication: BLOOD CHOLESTEROL ABNORMAL
     Route: 048
  9. NOVOLIN N [Concomitant]
     Active Substance: INSULIN HUMAN
  10. NAMENDA [Concomitant]
     Active Substance: MEMANTINE HYDROCHLORIDE
     Route: 048
     Dates: start: 201606
  11. IMBRUVICA [Suspect]
     Active Substance: IBRUTINIB
     Indication: CHRONIC LYMPHOCYTIC LEUKAEMIA
     Route: 048
     Dates: start: 20151108, end: 20161120
  12. IMBRUVICA [Suspect]
     Active Substance: IBRUTINIB
     Indication: CHRONIC LYMPHOCYTIC LEUKAEMIA
     Route: 048
     Dates: start: 20151118, end: 20161120
  13. METOPROLOL. [Concomitant]
     Active Substance: METOPROLOL
     Indication: HYPERTENSION
     Route: 048
  14. NPH INSULIN [Concomitant]
     Active Substance: INSULIN BEEF
     Indication: TYPE 2 DIABETES MELLITUS
     Dosage: 25 UNITS IN AM AND 22 UNITS AT NIGHT
     Route: 058

REACTIONS (26)
  - Appendicitis [Not Recovered/Not Resolved]
  - Staphylococcal sepsis [Unknown]
  - Urinary tract infection staphylococcal [Recovering/Resolving]
  - Anaemia [Recovering/Resolving]
  - Contusion [Not Recovered/Not Resolved]
  - Headache [Unknown]
  - Urinary tract stoma complication [Unknown]
  - Craniotomy [Recovered/Resolved]
  - Peripheral swelling [Recovered/Resolved]
  - White blood cell count decreased [Recovered/Resolved]
  - Rash pruritic [Unknown]
  - Cerebral disorder [Unknown]
  - Mental status changes [Unknown]
  - Bone pain [Not Recovered/Not Resolved]
  - Arthralgia [Not Recovered/Not Resolved]
  - Staphylococcal infection [Recovering/Resolving]
  - Night sweats [Unknown]
  - Acrochordon [Not Recovered/Not Resolved]
  - Pain in extremity [Recovering/Resolving]
  - Hypersomnia [Unknown]
  - Myalgia [Not Recovered/Not Resolved]
  - Joint swelling [Recovered/Resolved]
  - Weight decreased [Unknown]
  - Hernia [Not Recovered/Not Resolved]
  - Urinary tract infection [Not Recovered/Not Resolved]
  - Pyrexia [Unknown]

NARRATIVE: CASE EVENT DATE: 2015
